FAERS Safety Report 7089118-5 (Version None)
Quarter: 2010Q4

REPORT INFORMATION
  Report Type: 
  Country: None (occurrence: None)
  Receive Date: 20101108
  Receipt Date: 20101104
  Transmission Date: 20110411
  Serious: Yes (Death)
  Sender: FDA-Public Use
  Company Number: US-ABBOTT-10P-163-0683385-00

PATIENT
  Sex: Male
  Weight: 129.39 kg

DRUGS (3)
  1. ZEMPLAR [Suspect]
     Indication: RENAL FAILURE
     Dates: start: 20100201
  2. UNKNOWN DIABETIC MEDCIATION [Concomitant]
     Indication: PRODUCT USED FOR UNKNOWN INDICATION
  3. UNKNOWN HEART MEDCIATION [Concomitant]
     Indication: CORONARY ARTERY BYPASS

REACTIONS (1)
  - MYOCARDIAL INFARCTION [None]
